FAERS Safety Report 20837571 (Version 1)
Quarter: 2022Q2

REPORT INFORMATION
  Report Type: Spontaneous
  Country: US (occurrence: None)
  Receive Date: 20220516
  Receipt Date: 20220516
  Transmission Date: 20220721
  Serious: Yes (Hospitalization)
  Sender: FDA-Public Use
  Company Number: None

PATIENT
  Age: 92 Year
  Sex: Female
  Weight: 49.9 kg

DRUGS (1)
  1. WARFARIN [Suspect]
     Active Substance: WARFARIN
     Indication: Atrial fibrillation
     Dosage: FREQUENCY : DAILY;?
     Route: 048
     Dates: start: 20210804, end: 20220314

REACTIONS (7)
  - Anticoagulation drug level below therapeutic [None]
  - Central nervous system lesion [None]
  - Cerebellar calcification [None]
  - Haemangioma [None]
  - Cerebral haemorrhage [None]
  - NIH stroke scale score increased [None]
  - Muscular weakness [None]

NARRATIVE: CASE EVENT DATE: 20220314
